FAERS Safety Report 13132001 (Version 8)
Quarter: 2019Q3

REPORT INFORMATION
  Report Type: Report from Study
  Country: DE (occurrence: DE)
  Receive Date: 20170119
  Receipt Date: 20190822
  Transmission Date: 20191004
  Serious: Yes (Other)
  Sender: FDA-Public Use
  Company Number: PHHY2017DE004737

PATIENT
  Sex: Female
  Weight: 71 kg

DRUGS (19)
  1. DEKRISTOL [Concomitant]
     Active Substance: CHOLECALCIFEROL
     Indication: OSTEOPOROSIS PROPHYLAXIS
     Dosage: 1 DF, QW
     Route: 048
     Dates: start: 20160515
  2. HYDROCORTISONE. [Concomitant]
     Active Substance: HYDROCORTISONE
     Indication: ANKYLOSING SPONDYLITIS
     Dosage: 10-5-0 MG, UNK
     Route: 048
     Dates: start: 20130819
  3. COSENTYX [Suspect]
     Active Substance: SECUKINUMAB
     Dosage: 150 MG, PER APPLICATION
     Route: 065
     Dates: start: 20161229
  4. IDEOS [Concomitant]
     Active Substance: CALCIUM CARBONATE\CHOLECALCIFEROL
     Indication: OSTEOPOROSIS PROPHYLAXIS
     Dosage: 1 DF, QD
     Route: 048
     Dates: start: 20140515
  5. AMOXICILLIN. [Concomitant]
     Active Substance: AMOXICILLIN
     Indication: PYELONEPHRITIS
     Dosage: 2 DF, QD (DAILY DOSE)
     Route: 048
     Dates: start: 20170330
  6. OXYCODONE [Concomitant]
     Active Substance: OXYCODONE
     Indication: ANKYLOSING SPONDYLITIS
     Dosage: 20 MG, QD (1-0-0)
     Route: 048
     Dates: start: 20161220, end: 20170329
  7. THYBON [Concomitant]
     Active Substance: LIOTHYRONINE
     Indication: THYROID FUNCTION TEST NORMAL
     Dosage: 20 UG, QD (0-1-0)
     Route: 048
     Dates: start: 20161221
  8. TARGIN [Concomitant]
     Active Substance: NALOXONE HYDROCHLORIDE\OXYCODONE HYDROCHLORIDE
     Indication: ANKYLOSING SPONDYLITIS
     Dosage: 10 MG, TID
     Route: 048
     Dates: start: 20170330
  9. EUTHYROX [Concomitant]
     Active Substance: LEVOTHYROXINE SODIUM
     Indication: THYROID FUNCTION TEST NORMAL
     Dosage: 150 UG, QD (1-0-0)
     Route: 048
     Dates: start: 20160929
  10. THYBON [Concomitant]
     Active Substance: LIOTHYRONINE
     Indication: EUTHYROID SICK SYNDROME
  11. COSENTYX [Suspect]
     Active Substance: SECUKINUMAB
     Dosage: 150 MG, PER APPLICATION
     Route: 065
     Dates: start: 20161222
  12. MEDIKINET [Concomitant]
     Active Substance: METHYLPHENIDATE
     Indication: ANKYLOSING SPONDYLITIS
     Dosage: QD (1-0-0)
     Route: 048
     Dates: start: 20160316
  13. CIPROFLOXACIN. [Concomitant]
     Active Substance: CIPROFLOXACIN
     Indication: ASTHMA
     Dosage: 125 MG, QD (0-0-1)
     Route: 048
     Dates: start: 20160622
  14. SYMBICORT [Concomitant]
     Active Substance: BUDESONIDE\FORMOTEROL FUMARATE DIHYDRATE
     Indication: ASTHMA
     Dosage: 1 DF (2 UG/L), BID (1-0-1)
     Route: 050
     Dates: start: 20160929
  15. COSENTYX [Suspect]
     Active Substance: SECUKINUMAB
     Indication: ANKYLOSING SPONDYLITIS
     Dosage: 150 MG, PER APPLICATION
     Route: 065
     Dates: start: 20161215
  16. COSENTYX [Suspect]
     Active Substance: SECUKINUMAB
     Dosage: 150 MG, PER APPLICATION
     Route: 065
     Dates: start: 20170105
  17. COSENTYX [Suspect]
     Active Substance: SECUKINUMAB
     Dosage: 150 MG, PER APPLICATION
     Route: 065
     Dates: start: 20170116, end: 20170329
  18. BERODUAL [Concomitant]
     Active Substance: FENOTEROL HYDROBROMIDE\IPRATROPIUM BROMIDE
     Indication: ASTHMA
     Dosage: PRN (AS NEEDED)
     Route: 050
     Dates: start: 20160929, end: 20170329
  19. SPIRIVA [Concomitant]
     Active Substance: TIOTROPIUM BROMIDE MONOHYDRATE
     Indication: ASTHMA
     Dosage: 2 DF, QD (1-0-0)
     Route: 050
     Dates: start: 20170330

REACTIONS (7)
  - Dizziness [Recovered/Resolved]
  - Malaise [Recovered/Resolved]
  - Malaise [Unknown]
  - Panic attack [Recovered/Resolved]
  - Circulatory collapse [Recovered/Resolved]
  - Urinary tract infection [Not Recovered/Not Resolved]
  - Syncope [Recovered/Resolved]

NARRATIVE: CASE EVENT DATE: 20161221
